FAERS Safety Report 9288823 (Version 2)
Quarter: 2013Q2

REPORT INFORMATION
  Report Type: Spontaneous
  Country: US (occurrence: US)
  Receive Date: 20130514
  Receipt Date: 20130515
  Transmission Date: 20140414
  Serious: Yes (Hospitalization, Disabling, Other)
  Sender: FDA-Public Use
  Company Number: US-BAYER-2013-056740

PATIENT
  Age: 43 Year
  Sex: Female

DRUGS (3)
  1. YAZ [Suspect]
     Dosage: UNK
     Dates: start: 200603, end: 200909
  2. YASMIN [Suspect]
     Dosage: UNK
     Dates: start: 200603, end: 200909
  3. OCELLA [Suspect]
     Dosage: UNK
     Dates: start: 200603, end: 200909

REACTIONS (8)
  - Gallbladder disorder [None]
  - Cholecystitis [None]
  - Injury [None]
  - Pain [None]
  - Deformity [None]
  - Anxiety [None]
  - Anhedonia [None]
  - Emotional distress [None]
